FAERS Safety Report 12213556 (Version 4)
Quarter: 2019Q1

REPORT INFORMATION
  Report Type: Spontaneous
  Country: US (occurrence: US)
  Receive Date: 20160328
  Receipt Date: 20190304
  Transmission Date: 20190417
  Serious: No
  Sender: FDA-Public Use
  Company Number: US-PFIZER INC-2016131187

PATIENT
  Sex: Female
  Weight: 106.12 kg

DRUGS (1)
  1. CELEBREX [Suspect]
     Active Substance: CELECOXIB
     Dosage: UNK

REACTIONS (4)
  - Insomnia [Unknown]
  - Agitation [Unknown]
  - Drug hypersensitivity [Unknown]
  - Anxiety [Unknown]
